FAERS Safety Report 14347304 (Version 1)
Quarter: 2018Q1

REPORT INFORMATION
  Report Type: Spontaneous
  Country: US (occurrence: US)
  Receive Date: 20180103
  Receipt Date: 20180103
  Transmission Date: 20180509
  Serious: Yes (Death, Hospitalization)
  Sender: FDA-Public Use
  Company Number: None

PATIENT
  Age: 75 Year
  Sex: Female
  Weight: 66.22 kg

DRUGS (8)
  1. TRAMADOL. [Concomitant]
     Active Substance: TRAMADOL
  2. FISH OIL [Concomitant]
     Active Substance: FISH OIL
  3. VITAMIN B12 [Concomitant]
     Active Substance: CYANOCOBALAMIN
  4. METOPROLOL. [Concomitant]
     Active Substance: METOPROLOL
  5. DULOXETINE HCL DR 60MG CAPSULE [Suspect]
     Active Substance: DULOXETINE HYDROCHLORIDE
     Indication: ANXIETY
     Route: 048
     Dates: start: 20170217, end: 20170601
  6. FOLIC ACID. [Concomitant]
     Active Substance: FOLIC ACID
  7. TRAZODONE [Concomitant]
     Active Substance: TRAZODONE HYDROCHLORIDE
  8. OMEPRAZOLE. [Concomitant]
     Active Substance: OMEPRAZOLE

REACTIONS (10)
  - Nausea [None]
  - Dizziness [None]
  - Confusional state [None]
  - Toxicity to various agents [None]
  - Dysuria [None]
  - Asthenia [None]
  - Vision blurred [None]
  - Abdominal pain [None]
  - Fall [None]
  - Vomiting [None]

NARRATIVE: CASE EVENT DATE: 20170405
